FAERS Safety Report 16864946 (Version 1)
Quarter: 2019Q3

REPORT INFORMATION
  Report Type: Report from Study
  Country: DE (occurrence: DE)
  Receive Date: 20190929
  Receipt Date: 20190929
  Transmission Date: 20191005
  Serious: Yes (Hospitalization, Other)
  Sender: FDA-Public Use
  Company Number: DE-BEH-2019101871

PATIENT
  Age: 66 Year
  Sex: Female
  Weight: 70.5 kg

DRUGS (20)
  1. L-THYROXIN [Concomitant]
     Active Substance: LEVOTHYROXINE SODIUM
     Dosage: 88 ?G, OD (IN THE MORNING) (REDUCTION SINCE 18-OCT-2017)
     Route: 065
  2. IDEOS [Concomitant]
     Active Substance: CALCIUM CARBONATE\CHOLECALCIFEROL
     Dosage: 1 IN THE MORNING, 1 IN THE EVENING
     Route: 065
  3. PRIVIGEN [Suspect]
     Active Substance: HUMAN IMMUNOGLOBULIN G
     Indication: IMMUNODEFICIENCY
     Dosage: 20 GRAM, TOT
     Route: 042
     Dates: start: 20190226, end: 20190226
  4. LYRICA [Concomitant]
     Active Substance: PREGABALIN
     Dosage: UNK UNK, BID (2 IN THE MORNING, 2 IN THE EVENING)
     Route: 065
     Dates: start: 20161213
  5. LENALIDOMIDE [Concomitant]
     Active Substance: LENALIDOMIDE
     Indication: CHEMOTHERAPY
     Dosage: 25 MG DAY 1 TO 21
     Route: 048
  6. REVLIMID [Concomitant]
     Active Substance: LENALIDOMIDE
     Dosage: 15 MG, OD (IN THE EVENING)
     Route: 065
     Dates: start: 20190408, end: 20190428
  7. DEXAMETHASONE. [Concomitant]
     Active Substance: DEXAMETHASONE
     Dosage: 40 MG, BID (2 IN THE MORNING) (ON DAY 8 AND DAY 22 REDUCED DOSAGE)
     Route: 065
  8. RAMIPRIL. [Concomitant]
     Active Substance: RAMIPRIL
     Dosage: 5 MG (PAUSED DUE TO DRY COUGH)
     Route: 065
  9. LAXOBERAL BISA [Concomitant]
     Route: 065
  10. PANTOPRAZOLE [Concomitant]
     Active Substance: PANTOPRAZOLE
     Dosage: 20 MG, OD (1 IN THE MORNING)
     Route: 065
  11. SPIRO [Concomitant]
     Dosage: 25 MG, OD (1 IN THE MORNING)
     Route: 065
  12. ZOMETA [Concomitant]
     Active Substance: ZOLEDRONIC ACID
     Dosage: 4 MG, QMT (EVERY 4 WEEKS)
     Route: 065
  13. PRIVIGEN [Suspect]
     Active Substance: HUMAN IMMUNOGLOBULIN G
     Indication: PLASMACYTOMA
     Dosage: 20 GRAM, TOT
     Route: 042
     Dates: start: 20190326, end: 20190326
  14. ACICLOVIR [Concomitant]
     Active Substance: ACYCLOVIR
     Dosage: UNK UNK, BID (1 IN THE MORNING, 1 IN THE EVENING)
     Route: 065
     Dates: start: 20170308
  15. NOVAMINSULFON [Concomitant]
     Active Substance: METAMIZOLE
     Dosage: EACH 1 IN THE MORNING, AT NOON, IN THE EVENING, AT NIGHT
     Route: 065
  16. PRIVIGEN [Suspect]
     Active Substance: HUMAN IMMUNOGLOBULIN G
     Indication: INFECTION
     Dosage: 20 GRAM, TOT
     Route: 042
     Dates: start: 20190425, end: 20190425
  17. DEXAMETHASONE. [Concomitant]
     Active Substance: DEXAMETHASONE
     Dosage: 28 MG ON DAY 1 AND 15 (APPR. 3-24 HOURS BEFORE ADMINISTRATION OF ELOTUZUMAB)
     Route: 048
  18. CLEXANE [Concomitant]
     Active Substance: ENOXAPARIN SODIUM
     Dosage: 40 MG, OD (IN THE EVENING)
     Route: 065
  19. PRIVIGEN [Suspect]
     Active Substance: HUMAN IMMUNOGLOBULIN G
     Indication: SECONDARY IMMUNODEFICIENCY
     Dosage: 20 G, TOT
     Route: 042
     Dates: start: 20190425, end: 20190425
  20. ELOTUZUMAB. [Concomitant]
     Active Substance: ELOTUZUMAB
     Indication: CHEMOTHERAPY
     Dosage: 10 MG/KG, QW (ON DAY 1, 8, 15, 22)
     Route: 065

REACTIONS (7)
  - Drug hypersensitivity [Recovered/Resolved]
  - Dyspnoea [Recovered/Resolved]
  - Pyrexia [Recovered/Resolved]
  - Chills [Recovered/Resolved]
  - No adverse event [Unknown]
  - Pain [Recovered/Resolved]
  - Therapy cessation [Unknown]

NARRATIVE: CASE EVENT DATE: 20190425
